FAERS Safety Report 25729345 (Version 2)
Quarter: 2025Q3

REPORT INFORMATION
  Report Type: Spontaneous
  Country: EU (occurrence: EU)
  Receive Date: 20250827
  Receipt Date: 20250828
  Transmission Date: 20251020
  Serious: Yes (Other)
  Sender: CELLTRION
  Company Number: EU-BLG-GRC/2025/07/010984

PATIENT

DRUGS (2)
  1. RITUXIMAB [Suspect]
     Active Substance: RITUXIMAB
     Indication: Fibrillary glomerulonephritis
  2. MYCOPHENOLATE MOFETIL [Concomitant]
     Active Substance: MYCOPHENOLATE MOFETIL
     Indication: Fibrillary glomerulonephritis

REACTIONS (3)
  - Drug ineffective for unapproved indication [Unknown]
  - Hypersensitivity [Unknown]
  - Off label use [Unknown]
